FAERS Safety Report 10389205 (Version 2)
Quarter: 2014Q4

REPORT INFORMATION
  Report Type: Spontaneous
  Country: NL (occurrence: NL)
  Receive Date: 20140818
  Receipt Date: 20141017
  Transmission Date: 20150528
  Serious: Yes (Hospitalization)
  Sender: FDA-Public Use
  Company Number: NL-JNJFOC-20140807798

PATIENT
  Age: 85 Year
  Sex: Female

DRUGS (9)
  1. LOZAP (LOSARTAN POTASSIUM) [Concomitant]
     Route: 048
     Dates: start: 20140726, end: 20140808
  2. FUCITHALMIC [Concomitant]
     Route: 065
     Dates: start: 20070912
  3. DIVISUN [Concomitant]
     Dosage: 800IE
     Route: 048
     Dates: start: 20140726, end: 20140808
  4. ACENOCOUMAROL [Concomitant]
     Active Substance: ACENOCOUMAROL
     Route: 048
     Dates: start: 20140707, end: 20141005
  5. IMODIUM [Suspect]
     Active Substance: LOPERAMIDE HYDROCHLORIDE
     Route: 048
  6. SIMVASTATINE [Concomitant]
     Active Substance: SIMVASTATIN
     Route: 048
     Dates: start: 20140726, end: 20140808
  7. PROFORE LITE [Concomitant]
     Route: 065
     Dates: start: 20090915
  8. IMODIUM [Suspect]
     Active Substance: LOPERAMIDE HYDROCHLORIDE
     Indication: DIARRHOEA
     Route: 048
     Dates: start: 201407, end: 20140804
  9. VERAPAMIL HCL [Concomitant]
     Active Substance: VERAPAMIL HYDROCHLORIDE
     Route: 048
     Dates: start: 20140726, end: 20140808

REACTIONS (13)
  - Disorientation [Unknown]
  - Gastrointestinal infection [Unknown]
  - Vomiting [Unknown]
  - Lung infection [Unknown]
  - Nausea [Unknown]
  - Abdominal pain [Unknown]
  - Urinary tract infection [Unknown]
  - Pneumonia [Unknown]
  - Cerebral haemorrhage [Unknown]
  - Extensor plantar response [Unknown]
  - Hypokalaemia [Not Recovered/Not Resolved]
  - Hemiparesis [Unknown]
  - Malaise [Unknown]

NARRATIVE: CASE EVENT DATE: 20140804
